FAERS Safety Report 11450630 (Version 1)
Quarter: 2015Q3

REPORT INFORMATION
  Report Type: Spontaneous
  Country: US (occurrence: US)
  Receive Date: 20150903
  Receipt Date: 20150903
  Transmission Date: 20151125
  Serious: Yes (Hospitalization, Other)
  Sender: FDA-Public Use
  Company Number: US-ASTRAZENECA-2015SE83500

PATIENT
  Sex: Male

DRUGS (10)
  1. PROAIR HFA [Concomitant]
     Active Substance: ALBUTEROL SULFATE
     Indication: INHALATION THERAPY
     Route: 055
  2. XOPHONEX [Concomitant]
     Indication: BRONCHIAL DISORDER
  3. PILL [Concomitant]
  4. FLOVENT [Concomitant]
     Active Substance: FLUTICASONE PROPIONATE
  5. PULMICORT TURBUHALER [Suspect]
     Active Substance: BUDESONIDE
     Indication: ASTHMA
     Dosage: DOSE AND FREQUENCY UNKNOWN
     Route: 055
  6. OTHER INHALED CORTICOSTEROIDS [Concomitant]
  7. ALBUTEROL. [Concomitant]
     Active Substance: ALBUTEROL
     Indication: BRONCHIAL DISORDER
  8. QVAR [Concomitant]
     Active Substance: BECLOMETHASONE DIPROPIONATE
     Dosage: 3 PUFFS, TWO TIMES A DAY
     Route: 055
  9. SINGULAIR [Concomitant]
     Active Substance: MONTELUKAST SODIUM
     Dosage: TWO TIMES A DAY
  10. SYMBICORT [Suspect]
     Active Substance: BUDESONIDE\FORMOTEROL FUMARATE DIHYDRATE
     Indication: ASTHMA
     Dosage: DOSE AND FREQUENCY UNKNOWN
     Route: 055

REACTIONS (8)
  - Malaise [Unknown]
  - Asthma [Unknown]
  - Anxiety [Unknown]
  - Drug ineffective [Unknown]
  - Cough [Unknown]
  - Syncope [Unknown]
  - Drug dose omission [Unknown]
  - Lung disorder [Unknown]
